FAERS Safety Report 20860756 (Version 1)
Quarter: 2022Q2

REPORT INFORMATION
  Report Type: Spontaneous
  Country: HR (occurrence: HR)
  Receive Date: 20220523
  Receipt Date: 20220523
  Transmission Date: 20220721
  Serious: Yes (Other)
  Sender: FDA-Public Use
  Company Number: None

PATIENT
  Age: 56 Year
  Sex: Female

DRUGS (3)
  1. CLOZAPINE [Suspect]
     Active Substance: CLOZAPINE
     Indication: Product used for unknown indication
     Dosage: 1250 MILLIGRAM, QD, POSSIBLY 50 TABLETS OF 25 MG
     Route: 048
     Dates: start: 20220404, end: 20220404
  2. AKINETON [Suspect]
     Active Substance: BIPERIDEN HYDROCHLORIDE
     Indication: Product used for unknown indication
     Dosage: 20 MILLIGRAM, QD, POSSIBLY 10 TABLETS OF 2 MG
     Route: 048
     Dates: start: 20220404, end: 20220404
  3. ZOLPIDEM TARTRATE [Suspect]
     Active Substance: ZOLPIDEM TARTRATE
     Indication: Product used for unknown indication
     Dosage: 300 MILLIGRAM, QDT, POSSIBLY 30 TABLETS OF 10 MG
     Route: 048
     Dates: start: 20220404, end: 20220404

REACTIONS (4)
  - Coma [Unknown]
  - Suicide attempt [Unknown]
  - Vomiting [Unknown]
  - Intentional overdose [Unknown]

NARRATIVE: CASE EVENT DATE: 20220404
